FAERS Safety Report 4530866-6 (Version None)
Quarter: 2004Q4

REPORT INFORMATION
  Report Type: 
  Country: None (occurrence: None)
  Receive Date: 20041215
  Receipt Date: 20041130
  Transmission Date: 20050328
  Serious: Yes (Hospitalization)
  Sender: FDA-Public Use
  Company Number: US014389

PATIENT
  Age: 49 Year
  Sex: Female
  Weight: 63.5036 kg

DRUGS (6)
  1. ACTIQ [Suspect]
     Indication: BACK PAIN
     Dates: start: 20040701, end: 20040101
  2. ACTIQ [Suspect]
     Indication: BACK PAIN
     Dosage: 8000 UG QD BUCCAL
     Route: 002
     Dates: start: 20040101, end: 20041107
  3. ACTIQ [Suspect]
     Indication: BACK PAIN
     Dosage: 1600 UG QID BUCCAL
     Route: 002
     Dates: start: 20041108, end: 20041118
  4. METHADONE [Suspect]
     Indication: PAIN
     Dosage: 100 MG BID
     Dates: start: 20041118
  5. BOTOX [Suspect]
     Indication: BACK PAIN
  6. EFFEXOR [Concomitant]

REACTIONS (2)
  - LOSS OF CONSCIOUSNESS [None]
  - RHABDOMYOLYSIS [None]
